FAERS Safety Report 4989064-4 (Version None)
Quarter: 2006Q2

REPORT INFORMATION
  Report Type: 
  Country: None (occurrence: None)
  Receive Date: 20060425
  Receipt Date: 20060412
  Transmission Date: 20061013
  Serious: Yes (Hospitalization)
  Sender: FDA-Public Use
  Company Number: 2006053413

PATIENT
  Age: 52 Year
  Sex: Female

DRUGS (6)
  1. RELPAX [Suspect]
     Indication: MIGRAINE
     Dosage: 40 MG
     Dates: start: 20060101, end: 20060401
  2. CYPROTERONE (CYPROTERONE) [Concomitant]
  3. ALL OTHER THERAPEUTIC PRODUCTS (ALL OTHER THERAPEUTIC PRODUCTS) [Concomitant]
  4. FIXICAL (CALCIUM CARBONATE) [Concomitant]
  5. FENOFIBRATE [Concomitant]
  6. CLIMENE (CYPROTERONE ACETATE, ESTRADIOL VALERATE) [Concomitant]

REACTIONS (2)
  - COLITIS ISCHAEMIC [None]
  - VASOCONSTRICTION [None]
